FAERS Safety Report 12502354 (Version 2)
Quarter: 2016Q3

REPORT INFORMATION
  Report Type: Report from Study
  Country: US (occurrence: US)
  Receive Date: 20160627
  Receipt Date: 20160712
  Transmission Date: 20161109
  Serious: Yes (Hospitalization, Other)
  Sender: FDA-Public Use
  Company Number: US-GILEAD-2016-0218026

PATIENT
  Age: 54 Year
  Sex: Female

DRUGS (1)
  1. LEDIPASVIR/SOFOSBUVIR [Suspect]
     Active Substance: LEDIPASVIR\SOFOSBUVIR
     Indication: HEPATITIS C
     Dosage: 1 DF, UNK
     Route: 048
     Dates: start: 20160522, end: 2016

REACTIONS (8)
  - Fall [Unknown]
  - Drug dose omission [Recovered/Resolved]
  - Seizure [Unknown]
  - Weight increased [Unknown]
  - Abdominal pain upper [Unknown]
  - Memory impairment [Unknown]
  - Hunger [Unknown]
  - Decreased interest [Unknown]

NARRATIVE: CASE EVENT DATE: 2016
